FAERS Safety Report 21839942 (Version 1)
Quarter: 2023Q1

REPORT INFORMATION
  Report Type: Spontaneous
  Country: JP (occurrence: JP)
  Receive Date: 20230110
  Receipt Date: 20230110
  Transmission Date: 20230417
  Serious: Yes (Hospitalization)
  Sender: FDA-Public Use
  Company Number: JP-Concordia Pharmaceuticals Inc.-GSH201704-002637

PATIENT

DRUGS (6)
  1. HYDROXYCHLOROQUINE SULFATE [Suspect]
     Active Substance: HYDROXYCHLOROQUINE SULFATE
     Indication: Systemic lupus erythematosus
     Dosage: 200 MG, QD (200 MG QD AND 400 MG QD, ALTERNATIVELY))
     Route: 048
     Dates: start: 20170104
  2. HYDROXYCHLOROQUINE SULFATE [Suspect]
     Active Substance: HYDROXYCHLOROQUINE SULFATE
     Dosage: 400 MG, QD (200 MG QD AND 400 MG QD, ALTERNATIVELY))
     Route: 048
     Dates: start: 20170104, end: 20170225
  3. PREDONINE [Concomitant]
     Active Substance: PREDNISOLONE
     Indication: Systemic lupus erythematosus
     Dosage: 10 MG, QD (10 MG/DAY)
     Route: 048
     Dates: start: 2008
  4. PREDONINE [Concomitant]
     Active Substance: PREDNISOLONE
     Indication: Pustular psoriasis
     Dosage: 20 MG, QD (20 MG/DAY)
     Route: 048
     Dates: start: 2016
  5. PREDONINE [Concomitant]
     Active Substance: PREDNISOLONE
     Dosage: 30 MG, QD (30 MG/DAY, INCREASED DOSE)
     Route: 048
     Dates: start: 20170202
  6. PREDONINE [Concomitant]
     Active Substance: PREDNISOLONE
     Dosage: STARED TO BE TAPERED
     Route: 048
     Dates: start: 20170225

REACTIONS (3)
  - Pustular psoriasis [Recovered/Resolved]
  - Erythema [Recovered/Resolved]
  - Exposure during pregnancy [Unknown]

NARRATIVE: CASE EVENT DATE: 20170202
